FAERS Safety Report 8107298-7 (Version None)
Quarter: 2011Q4

REPORT INFORMATION
  Report Type: 
  Country: None (occurrence: None)
  Receive Date: 20111227
  Receipt Date: 20110912
  Transmission Date: 20120403
  Serious: Yes (Hospitalization, Other)
  Sender: FDA-Public Use
  Company Number: PHEH2011US03647

PATIENT
  Age: 20 Year
  Sex: Female

DRUGS (6)
  1. ASPIRIN [Concomitant]
  2. GILENYA [Suspect]
     Indication: MULTIPLE SCLEROSIS
     Dosage: 0.5 MG/ QD, ORAL
     Route: 048
     Dates: start: 20110609
  3. CLARITIN [Concomitant]
  4. FOLIC ACID [Concomitant]
  5. DIAZEPAM [Concomitant]
  6. NEXIUM [Concomitant]

REACTIONS (1)
  - MULTIPLE SCLEROSIS RELAPSE [None]
